APPROVED DRUG PRODUCT: CIPROFLOXACIN HYDROCHLORIDE
Active Ingredient: CIPROFLOXACIN HYDROCHLORIDE
Strength: EQ 0.3% BASE
Dosage Form/Route: SOLUTION/DROPS;OPHTHALMIC
Application: A076555 | Product #001
Applicant: PHARMOBEDIENT CONSULTING LLC
Approved: Dec 11, 2008 | RLD: No | RS: No | Type: DISCN